FAERS Safety Report 8222937-8 (Version None)
Quarter: 2012Q1

REPORT INFORMATION
  Report Type: 
  Country: None (occurrence: None)
  Receive Date: 20120320
  Receipt Date: 20120313
  Transmission Date: 20120608
  Serious: Yes (Other)
  Sender: FDA-Public Use
  Company Number: PHEH2011US012883

PATIENT
  Sex: Male

DRUGS (9)
  1. WELLBUTRIN XL [Concomitant]
     Dosage: 300 MG, QD
     Route: 048
  2. BACLOFEN [Concomitant]
  3. VITAMIN D [Concomitant]
     Dosage: 2000 U DAILY
     Route: 048
  4. GILENYA [Suspect]
     Indication: MULTIPLE SCLEROSIS
     Dosage: 0.5 MG, QD
     Route: 048
     Dates: start: 20110119, end: 20111201
  5. VITAMIN D [Concomitant]
     Dosage: 2000 U DAILY
     Route: 048
  6. ADDERALL 5 [Concomitant]
     Dosage: UNK
  7. DESYREL [Concomitant]
     Dosage: 1 DF, QD
     Route: 048
  8. NAMENDA [Concomitant]
     Dosage: 2 DF DAILY
     Route: 048
  9. VIAGRA [Concomitant]
     Dosage: 1 DF DAILY
     Route: 048

REACTIONS (22)
  - LIVER DISORDER [None]
  - ALANINE AMINOTRANSFERASE INCREASED [None]
  - MUSCLE SPASMS [None]
  - HYPOVITAMINOSIS [None]
  - URINARY TRACT INFECTION [None]
  - ASPARTATE AMINOTRANSFERASE INCREASED [None]
  - MUSCLE SPASTICITY [None]
  - DEPRESSION [None]
  - COGNITIVE DISORDER [None]
  - BLOOD GLUCOSE DECREASED [None]
  - PRURITUS [None]
  - VOMITING [None]
  - FATIGUE [None]
  - BLOOD UREA NITROGEN/CREATININE RATIO INCREASED [None]
  - BLOOD CREATININE DECREASED [None]
  - NAUSEA [None]
  - RETINAL DISORDER [None]
  - CLONUS [None]
  - LACERATION [None]
  - BLOOD ALKALINE PHOSPHATASE INCREASED [None]
  - MALAISE [None]
  - ASTHENIA [None]
